FAERS Safety Report 18021126 (Version 1)
Quarter: 2020Q3

REPORT INFORMATION
  Report Type: Report from Study
  Country: IT (occurrence: IT)
  Receive Date: 20200714
  Receipt Date: 20200714
  Transmission Date: 20201103
  Serious: Yes (Hospitalization)
  Sender: FDA-Public Use
  Company Number: IT-TEVA-2020-IT-1799445

PATIENT
  Age: 66 Year
  Sex: Male

DRUGS (7)
  1. RAMIPRIL. [Concomitant]
     Active Substance: RAMIPRIL
  2. BISOPROLOL FUMARATE. [Concomitant]
     Active Substance: BISOPROLOL FUMARATE
  3. ROSUVASTATIN. [Suspect]
     Active Substance: ROSUVASTATIN
     Indication: HYPERCHOLESTEROLAEMIA
     Route: 048
     Dates: start: 20200101, end: 20200525
  4. SPIRIVA RESPIMAT 2,5 MICROGRAMMI, SOLUZIONE PER INALAZIONE [Concomitant]
  5. ALLOPURINOL. [Concomitant]
     Active Substance: ALLOPURINOL
  6. LASIX [Concomitant]
     Active Substance: FUROSEMIDE
  7. CARDIOASPIRIN 100 MG COMPRESSE GASTRORESISTENTI [Concomitant]
     Active Substance: ASPIRIN

REACTIONS (3)
  - Asthenia [Recovering/Resolving]
  - Vertigo [Recovering/Resolving]
  - Balance disorder [Recovering/Resolving]

NARRATIVE: CASE EVENT DATE: 20200525
